FAERS Safety Report 4738587-1 (Version None)
Quarter: 2005Q3

REPORT INFORMATION
  Report Type: 
  Country: None (occurrence: None)
  Receive Date: 20050803
  Receipt Date: 20050721
  Transmission Date: 20060218
  Serious: Yes (Other)
  Sender: FDA-Public Use
  Company Number: 2005062855

PATIENT
  Age: 49 Year
  Sex: Female
  Weight: 31.0714 kg

DRUGS (11)
  1. BEXTRA [Suspect]
     Indication: OSTEOARTHRITIS
     Dosage: 20 MG (20 MG, 1 IN 1 D) ORAL
     Route: 048
  2. ARTHROTEC [Suspect]
     Indication: OSTEOARTHRITIS
     Dosage: 2 IN 1 D ORAL
     Route: 048
     Dates: start: 20050401
  3. ZOLOFT [Concomitant]
  4. ANTIHYPERTENSIVES [Concomitant]
  5. ALL OTHER THERAPEUTIC PRODUCTS [Concomitant]
  6. NEURONTIN [Concomitant]
  7. ALTACE [Concomitant]
  8. KLONOPIN [Concomitant]
  9. PREDNISONE [Concomitant]
  10. MAXITROL (DEXAMETHASONE, NEOMYCIN SULFATE, POLYMYXIN B SULFATE) [Concomitant]
  11. INFLAMASE FORTE (BENZALKONIUM CHLORIDE, PREDNISOLONE SODIUM PHOSPHATE) [Concomitant]

REACTIONS (14)
  - BLISTER [None]
  - CELLULITIS [None]
  - CORNEAL TRANSPLANT [None]
  - CYSTITIS [None]
  - DRUG HYPERSENSITIVITY [None]
  - DRUG INEFFECTIVE [None]
  - HYPERTENSION [None]
  - NASOPHARYNGITIS [None]
  - NEUROMA [None]
  - PAIN [None]
  - RASH [None]
  - ROSACEA [None]
  - STEVENS-JOHNSON SYNDROME [None]
  - TRANSPLANT REJECTION [None]
